FAERS Safety Report 17277430 (Version 1)
Quarter: 2020Q1

REPORT INFORMATION
  Report Type: Spontaneous
  Country: NL (occurrence: NL)
  Receive Date: 20200116
  Receipt Date: 20200116
  Transmission Date: 20200409
  Serious: Yes (Death)
  Sender: FDA-Public Use
  Company Number: NL-PFIZER INC-2020012302

PATIENT
  Age: 48 Year
  Sex: Male

DRUGS (6)
  1. VORICONAZOLE. [Suspect]
     Active Substance: VORICONAZOLE
     Indication: TRICHOSPORON INFECTION
     Dosage: 200 MG, 2X/DAY
     Route: 042
  2. POLYMYXIN B. [Concomitant]
     Active Substance: POLYMYXIN B
     Dosage: 2 %, UNK
  3. CEFTRIAXONE SODIUM. [Concomitant]
     Active Substance: CEFTRIAXONE SODIUM
     Indication: PERITONITIS BACTERIAL
     Dosage: 2000 MG, DAILY
     Route: 042
  4. PIPERACILLIN/TAZOBACTAM [Concomitant]
     Active Substance: PIPERACILLIN SODIUM\TAZOBACTAM SODIUM
     Dosage: 4000/500 MG, 3X/DAY
     Route: 042
  5. TOBRAMYCIN. [Concomitant]
     Active Substance: TOBRAMYCIN
     Dosage: 2 %, UNK
  6. AMPHOTERICIN B, LIPOSOME [Suspect]
     Active Substance: AMPHOTERICIN B
     Indication: TRICHOSPORON INFECTION
     Dosage: 5 MG/KG, DAILY
     Route: 042

REACTIONS (2)
  - Treatment failure [Fatal]
  - Drug resistance [Fatal]
